FAERS Safety Report 9102296 (Version 1)
Quarter: 2013Q1

REPORT INFORMATION
  Report Type: Spontaneous
  Country: US (occurrence: US)
  Receive Date: 20130219
  Receipt Date: 20130219
  Transmission Date: 20140127
  Serious: Yes (Other)
  Sender: FDA-Public Use
  Company Number: US-BAYER-2013-021022

PATIENT
  Age: 86 Year
  Sex: Female
  Weight: 66 kg

DRUGS (6)
  1. ALEVE CAPLET/TABLET,MIDOL EXTENDED RELIEF CAPLET [Suspect]
     Indication: ARTHRITIS
     Dosage: 2 DF, QD
     Route: 048
     Dates: start: 2012, end: 20130207
  2. CALCIUM [Concomitant]
  3. VITAMIN B12 NOS [Concomitant]
  4. HYDROCHLOROTHIAZIDE [Concomitant]
  5. OMEPRAZOLE [Concomitant]
  6. VITAMIN D [Concomitant]

REACTIONS (4)
  - Renal function test abnormal [None]
  - Urinary retention [Recovering/Resolving]
  - Urine flow decreased [Recovering/Resolving]
  - Incorrect drug administration duration [None]
